FAERS Safety Report 16266350 (Version 2)
Quarter: 2019Q2

REPORT INFORMATION
  Report Type: Spontaneous
  Country: US (occurrence: US)
  Receive Date: 20190502
  Receipt Date: 20190524
  Transmission Date: 20190711
  Serious: No
  Sender: FDA-Public Use
  Company Number: US-009507513-1904USA012133

PATIENT
  Age: 71 Year
  Sex: Female

DRUGS (5)
  1. NOXAFIL [Suspect]
     Active Substance: POSACONAZOLE
     Dosage: 100 MILLIGRAM, QD
     Route: 048
     Dates: start: 201806, end: 201808
  2. NOXAFIL [Suspect]
     Active Substance: POSACONAZOLE
     Dosage: 250 MILLIGRAM, QD
     Route: 048
     Dates: start: 201904
  3. NOXAFIL [Suspect]
     Active Substance: POSACONAZOLE
     Dosage: 150 MILLIGRAM, QD
     Route: 048
     Dates: start: 201808, end: 201904
  4. NOXAFIL [Suspect]
     Active Substance: POSACONAZOLE
     Indication: ASPERGILLUS TEST POSITIVE
     Dosage: UNK
     Route: 048
     Dates: start: 20180220, end: 201805
  5. NOXAFIL [Suspect]
     Active Substance: POSACONAZOLE
     Dosage: 200 MILLIGRAM, QD
     Route: 048
     Dates: start: 201805, end: 201806

REACTIONS (5)
  - Wrong technique in product usage process [Unknown]
  - Incorrect product administration duration [Unknown]
  - Drug level increased [Unknown]
  - Product prescribing issue [Unknown]
  - Product use in unapproved indication [Unknown]

NARRATIVE: CASE EVENT DATE: 2018
